FAERS Safety Report 5177434-3 (Version None)
Quarter: 2006Q4

REPORT INFORMATION
  Report Type: 
  Country: None (occurrence: None)
  Receive Date: 20061206
  Receipt Date: 20061124
  Transmission Date: 20070319
  Serious: Yes (Hospitalization)
  Sender: FDA-Public Use
  Company Number: ALA_0015_2006

PATIENT
  Age: 74 Year
  Sex: Male

DRUGS (13)
  1. ROWASA [Suspect]
     Indication: CROHN'S DISEASE
     Dosage: 1.5 G QDAY PO
     Route: 048
     Dates: start: 20060619, end: 20060916
  2. PENTASA [Concomitant]
  3. LANTUS [Concomitant]
  4. CIPROFLOXACIN [Concomitant]
  5. RIFADIN [Concomitant]
  6. IMUREL [Concomitant]
  7. SOLUPRED [Concomitant]
  8. INIPOMP [Concomitant]
  9. ACTOS [Concomitant]
  10. GLIMEPIRIDE [Concomitant]
  11. CELECTOL [Concomitant]
  12. PROZAC [Concomitant]
  13. LIPHANTYL [Concomitant]

REACTIONS (6)
  - ALANINE AMINOTRANSFERASE INCREASED [None]
  - BLOOD ALKALINE PHOSPHATASE INCREASED [None]
  - DRUG HYPERSENSITIVITY [None]
  - LYMPHADENOPATHY [None]
  - RASH MORBILLIFORM [None]
  - SKIN TEST POSITIVE [None]
